FAERS Safety Report 9423454 (Version 1)
Quarter: 2013Q3

REPORT INFORMATION
  Report Type: Spontaneous
  Country: US (occurrence: US)
  Receive Date: 20130726
  Receipt Date: 20130726
  Transmission Date: 20140515
  Serious: No
  Sender: FDA-Public Use
  Company Number: US-GALDERMA-US13000520

PATIENT
  Sex: Female

DRUGS (6)
  1. DIFFERIN (ADAPALENE) GEL, 0.3% [Suspect]
     Route: 061
     Dates: start: 201301
  2. CERAVE HYDRATING CLEANSER [Suspect]
     Indication: THERAPEUTIC SKIN CARE TOPICAL
     Route: 061
     Dates: start: 201301
  3. CERAVE PM MOISTURIZER [Suspect]
     Indication: DRY SKIN PROPHYLAXIS
     Route: 061
     Dates: start: 201301
  4. ALPHAHYDROXY FACE WASH [Concomitant]
     Indication: THERAPEUTIC SKIN CARE TOPICAL
     Route: 061
  5. AVENE MOISTURIZER [Concomitant]
     Indication: DRY SKIN PROPHYLAXIS
     Route: 061
  6. ELTA MD SPF [Concomitant]
     Indication: PROPHYLAXIS AGAINST SOLAR RADIATION
     Route: 061

REACTIONS (1)
  - Acne [Not Recovered/Not Resolved]
